FAERS Safety Report 10168822 (Version 1)
Quarter: 2014Q2

REPORT INFORMATION
  Report Type: Spontaneous
  Country: GB (occurrence: GB)
  Receive Date: 20140513
  Receipt Date: 20140513
  Transmission Date: 20141212
  Serious: Yes (Life-Threatening, Hospitalization, Disabling)
  Sender: FDA-Public Use
  Company Number: GB-JNJFOC-20140503882

PATIENT
  Age: 80 Year
  Sex: Female
  Weight: 95 kg

DRUGS (8)
  1. XARELTO [Suspect]
     Indication: PULMONARY EMBOLISM
     Route: 048
     Dates: start: 20140301, end: 20140423
  2. PARACETAMOL [Concomitant]
     Route: 065
  3. ATORVASTATIN [Concomitant]
     Route: 065
  4. FELODIPINE [Concomitant]
     Route: 065
  5. LISINOPRIL [Concomitant]
     Route: 065
  6. OMEPRAZOLE [Concomitant]
     Route: 065
  7. SOLIFENACIN [Concomitant]
     Route: 065
  8. ADCAL-D3 [Concomitant]
     Route: 065

REACTIONS (3)
  - Abdominal pain [Unknown]
  - Diarrhoea [Recovered/Resolved]
  - Rectal haemorrhage [Recovering/Resolving]
